FAERS Safety Report 21473296 (Version 1)
Quarter: 2022Q4

REPORT INFORMATION
  Report Type: Other
  Country: None (occurrence: TR)
  Receive Date: 20221018
  Receipt Date: 20221018
  Transmission Date: 20230113
  Serious: Yes (Other)
  Sender: FDA-Public Use
  Company Number: TR-B.Braun Medical Inc.-2133940

PATIENT
  Age: 13 Day
  Sex: Male

DRUGS (2)
  1. HEPARIN SODIUM IN DEXTROSE [Suspect]
     Active Substance: HEPARIN SODIUM
  2. ALBUMIN HUMAN [Concomitant]
     Active Substance: ALBUMIN HUMAN

REACTIONS (3)
  - Drug ineffective [Unknown]
  - Hypofibrinogenaemia [Unknown]
  - Hypocalcaemia [Unknown]
